FAERS Safety Report 7995903-5 (Version None)
Quarter: 2011Q4

REPORT INFORMATION
  Report Type: 
  Country: None (occurrence: None)
  Receive Date: 20111216
  Receipt Date: 20111209
  Transmission Date: 20120403
  Serious: Yes (Hospitalization, Other)
  Sender: FDA-Public Use
  Company Number: 127432

PATIENT
  Age: 49 Year
  Sex: Female

DRUGS (2)
  1. METOPROLOL TARTRATE [Suspect]
  2. DILTIAZEM HCL [Suspect]

REACTIONS (8)
  - HYPOTENSION [None]
  - DYSPNOEA [None]
  - TREATMENT NONCOMPLIANCE [None]
  - CHEST PAIN [None]
  - BRADYCARDIA [None]
  - LOSS OF CONSCIOUSNESS [None]
  - MULTIPLE DRUG OVERDOSE ACCIDENTAL [None]
  - ACIDOSIS [None]
